FAERS Safety Report 8127776-4 (Version None)
Quarter: 2012Q1

REPORT INFORMATION
  Report Type: 
  Country: None (occurrence: None)
  Receive Date: 20120210
  Receipt Date: 20120201
  Transmission Date: 20120608
  Serious: Yes (Other)
  Sender: FDA-Public Use
  Company Number: US-JNJFOC-20111202980

PATIENT
  Sex: Male
  Weight: 113.4 kg

DRUGS (22)
  1. REMICADE [Suspect]
     Route: 042
     Dates: start: 20110310
  2. REMICADE [Suspect]
     Route: 042
     Dates: start: 20110601
  3. ADVAIR DISKUS 100/50 [Concomitant]
     Indication: CHRONIC OBSTRUCTIVE PULMONARY DISEASE
     Route: 055
     Dates: start: 20090101
  4. PRAVASTATIN [Concomitant]
     Indication: BLOOD CHOLESTEROL
     Route: 048
  5. REMICADE [Suspect]
     Route: 042
     Dates: start: 20101021
  6. GLYBURIDE [Concomitant]
     Indication: TYPE 2 DIABETES MELLITUS
     Route: 048
     Dates: start: 20080101
  7. ASPIRIN [Concomitant]
     Indication: PROPHYLAXIS
     Route: 048
  8. XOPENEX [Concomitant]
     Route: 055
  9. REMICADE [Suspect]
     Route: 042
     Dates: start: 20111021
  10. VITAMIN D [Concomitant]
     Route: 048
  11. REMICADE [Suspect]
     Route: 042
     Dates: start: 20110113
  12. REMICADE [Suspect]
     Route: 042
     Dates: start: 20110420
  13. REMICADE [Suspect]
     Route: 042
     Dates: start: 20110713
  14. REMICADE [Suspect]
     Route: 042
     Dates: start: 20111121
  15. REMICADE [Suspect]
     Route: 042
     Dates: start: 20101104
  16. ALBUTEROL [Concomitant]
     Indication: CHRONIC OBSTRUCTIVE PULMONARY DISEASE
     Route: 055
  17. PROSCAR [Concomitant]
     Indication: PROSTATOMEGALY
     Route: 048
  18. ALL OTHER THERAPEUTIC DRUG [Concomitant]
     Indication: PROSTATOMEGALY
  19. REMICADE [Suspect]
     Indication: COLITIS ULCERATIVE
     Route: 042
     Dates: start: 20110830
  20. REMICADE [Suspect]
     Route: 042
     Dates: start: 20110901
  21. REMICADE [Suspect]
     Route: 042
     Dates: start: 20101202
  22. REMICADE [Suspect]
     Route: 042
     Dates: start: 20100101

REACTIONS (8)
  - URTICARIA [None]
  - PRURITUS GENERALISED [None]
  - HYPOKINESIA [None]
  - RENAL PAIN [None]
  - INFUSION RELATED REACTION [None]
  - PAIN [None]
  - RASH [None]
  - DRUG HYPERSENSITIVITY [None]
